FAERS Safety Report 10211036 (Version 1)
Quarter: 2014Q2

REPORT INFORMATION
  Report Type: Spontaneous
  Country: US (occurrence: None)
  Receive Date: 20140530
  Receipt Date: 20140530
  Transmission Date: 20141212
  Serious: No
  Sender: FDA-Public Use
  Company Number: None

PATIENT
  Age: 35 Year
  Sex: Female
  Weight: 70.31 kg

DRUGS (2)
  1. DULOXETINE 30MG [Suspect]
     Indication: DEPRESSION
     Dosage: 1 PILL  ONCE DAILY TAKEN BY MOUTH
     Route: 048
  2. DULOXETINE 30MG [Suspect]
     Indication: PAIN
     Dosage: 1 PILL  ONCE DAILY TAKEN BY MOUTH
     Route: 048

REACTIONS (2)
  - Product substitution issue [None]
  - Pain [None]
